FAERS Safety Report 9271987 (Version 3)
Quarter: 2013Q2

REPORT INFORMATION
  Report Type: Spontaneous
  Country: JP (occurrence: JP)
  Receive Date: 20130506
  Receipt Date: 20130603
  Transmission Date: 20140414
  Serious: Yes (Hospitalization)
  Sender: FDA-Public Use
  Company Number: JP-009507513-1304JPN016564

PATIENT
  Age: 65 Year
  Sex: Female

DRUGS (7)
  1. BETAMETHASONE SODIUM PHOSPHATE [Suspect]
     Indication: PAROSMIA
     Dosage: 3 DROPS
     Dates: start: 20120927, end: 20121129
  2. MUCODYNE [Concomitant]
     Indication: PAROSMIA
     Dosage: 1500 MG, QD
     Route: 048
     Dates: start: 20120927, end: 20130307
  3. TOKI-SHAKUYAKU-SAN [Concomitant]
     Indication: PAROSMIA
     Dosage: 7.5 MG, QD
     Route: 048
     Dates: start: 20120927, end: 20130307
  4. METHYCOBAL [Concomitant]
     Indication: PAROSMIA
     Dosage: 1500 MG, QD
     Route: 048
     Dates: start: 20120927, end: 20130307
  5. ONEALFA [Concomitant]
     Indication: OSTEOPOROSIS
     Dosage: 1 MICROGRAM, QD
     Route: 048
     Dates: start: 2002
  6. LIPOVAS (SIMVASTATIN) [Concomitant]
     Indication: HYPERLIPIDAEMIA
     Dosage: 5 MG, QD
     Route: 048
     Dates: start: 2002
  7. FERROMIA [Concomitant]
     Indication: IRON DEFICIENCY ANAEMIA
     Dosage: 50 MG, QD
     Route: 048
     Dates: start: 2002

REACTIONS (1)
  - Adrenal insufficiency [Recovered/Resolved]
